FAERS Safety Report 19695031 (Version 3)
Quarter: 2021Q3

REPORT INFORMATION
  Report Type: Report from Study
  Country: None (occurrence: HU)
  Receive Date: 20210812
  Receipt Date: 20210831
  Transmission Date: 20211014
  Serious: Yes (Hospitalization)
  Sender: FDA-Public Use
  Company Number: HU-ABBVIE-21P-076-4025358-00

PATIENT
  Age: 74 Year
  Sex: Male
  Weight: 95.5 kg

DRUGS (21)
  1. VENETOCLAX. [Suspect]
     Active Substance: VENETOCLAX
     Dosage: CYCLE = 28 DAYS
     Route: 048
     Dates: start: 20210823
  2. DEXAMETHASONE. [Suspect]
     Active Substance: DEXAMETHASONE
     Dosage: CYCLE 1?9 ON DAYS 1, 8, 15 AND 22 OF 28 DAY CYCLE
     Route: 048
     Dates: start: 20210622, end: 20210803
  3. ALLOPURINOL. [Concomitant]
     Active Substance: ALLOPURINOL
     Indication: PROPHYLAXIS
     Route: 048
     Dates: start: 20210520, end: 20210706
  4. MEFORAL [Concomitant]
     Active Substance: METFORMIN HYDROCHLORIDE
     Indication: GLUCOSE TOLERANCE IMPAIRED
     Route: 048
     Dates: start: 20200317
  5. PROPANOLOL [Concomitant]
     Active Substance: PROPRANOLOL HYDROCHLORIDE
     Indication: HYPERTENSION
     Route: 048
     Dates: start: 20191201
  6. CARFILZOMIB [Suspect]
     Active Substance: CARFILZOMIB
     Dosage: CYCLE 1: 20 MG/M2 ON D1; 70 MG/M2 ON D8?15,  CYCLE 2?18 ON D1, 8 AND 15
     Route: 042
     Dates: start: 20210601, end: 20210803
  7. ACICLOVIR [Concomitant]
     Active Substance: ACYCLOVIR
     Indication: ANTIVIRAL PROPHYLAXIS
     Route: 048
     Dates: start: 20170101
  8. PANTOPRAZOLE [Concomitant]
     Active Substance: PANTOPRAZOLE
     Indication: GASTROOESOPHAGEAL REFLUX PROPHYLAXIS
     Route: 048
     Dates: start: 20170101
  9. VENETOCLAX. [Suspect]
     Active Substance: VENETOCLAX
     Indication: PLASMA CELL MYELOMA
     Dosage: CYCLE 1 OF 28 DAY CYCLE
     Route: 048
     Dates: start: 20210525, end: 20210621
  10. CARFILZOMIB [Suspect]
     Active Substance: CARFILZOMIB
     Indication: PLASMA CELL MYELOMA
     Dosage: CYCLE 1: 20 MG/M2 ON D1; 70 MG/M2 ON D8?15,  CYCLE 2?18 ON D1, 8 AND 15
     Route: 042
     Dates: start: 20210525, end: 20210525
  11. XARELTO [Concomitant]
     Active Substance: RIVAROXABAN
     Indication: THROMBOSIS PROPHYLAXIS
     Route: 048
     Dates: start: 20200317
  12. CALCIUM [Concomitant]
     Active Substance: CALCIUM
     Indication: PROPHYLAXIS
     Route: 048
     Dates: start: 20170101
  13. LEVOFLOXACIN. [Concomitant]
     Active Substance: LEVOFLOXACIN
     Indication: ANTIBIOTIC PROPHYLAXIS
     Route: 048
     Dates: start: 20210520
  14. SUMETROLIM [Concomitant]
     Active Substance: SULFAMETHOXAZOLE\TRIMETHOPRIM
     Indication: ANTIBIOTIC PROPHYLAXIS
     Route: 048
     Dates: start: 20180108
  15. VITAMIN D [Concomitant]
     Active Substance: VITAMIN D NOS
     Indication: PROPHYLAXIS
     Route: 048
     Dates: start: 20170101
  16. CARFILZOMIB [Suspect]
     Active Substance: CARFILZOMIB
     Dosage: CYCLE 1: 20 MG/M2 ON D1; 70 MG/M2 ON D8?15,  CYCLE 2?18 ON D1, 8 AND 15
     Route: 042
     Dates: start: 20210823
  17. AMLODIPIN [Concomitant]
     Active Substance: AMLODIPINE BESYLATE
     Indication: HYPERTENSION
     Route: 048
     Dates: start: 20210520
  18. VENETOCLAX. [Suspect]
     Active Substance: VENETOCLAX
     Dosage: CYCLE = 28 DAYS
     Route: 048
     Dates: start: 20210622, end: 20210803
  19. DEXAMETHASONE. [Suspect]
     Active Substance: DEXAMETHASONE
     Indication: PLASMA CELL MYELOMA
     Dosage: CYCLE 1?9 ON DAYS 1, 8, 15 AND 22 OF 28 DAY CYCLE
     Route: 048
     Dates: start: 20210525, end: 20210615
  20. DEXAMETHASONE. [Suspect]
     Active Substance: DEXAMETHASONE
     Dosage: CYCLE 1?9 ON DAYS 1, 8, 15 AND 22 OF 28 DAY CYCLE
     Route: 048
     Dates: start: 20210823
  21. COPERINEVA [Concomitant]
     Indication: HYPERTENSION
     Route: 048
     Dates: start: 20200601

REACTIONS (1)
  - Sepsis [Recovered/Resolved]

NARRATIVE: CASE EVENT DATE: 20210803
